FAERS Safety Report 10830300 (Version 5)
Quarter: 2015Q1

REPORT INFORMATION
  Report Type: Spontaneous
  Country: IT (occurrence: IT)
  Receive Date: 20150219
  Receipt Date: 20150313
  Transmission Date: 20150721
  Serious: Yes (Other)
  Sender: FDA-Public Use
  Company Number: IT-SA-2015SA019738

PATIENT
  Age: 47 Year
  Sex: Female

DRUGS (5)
  1. RIFADIN [Suspect]
     Active Substance: RIFAMPIN
     Indication: BRUCELLOSIS
     Dosage: 2 PERIOD DAYS
     Route: 048
     Dates: start: 20150110, end: 20150112
  2. XANAX [Concomitant]
     Active Substance: ALPRAZOLAM
  3. FEVARIN [Concomitant]
     Active Substance: FLUVOXAMINE MALEATE
     Route: 048
  4. RIFADIN [Suspect]
     Active Substance: RIFAMPIN
     Indication: BRUCELLOSIS
     Route: 065
     Dates: start: 201501
  5. BASSADO [Suspect]
     Active Substance: DOXYCYCLINE HYCLATE
     Indication: BRUCELLOSIS
     Route: 048
     Dates: start: 20150110, end: 20150112

REACTIONS (8)
  - Hallucination, visual [Recovered/Resolved]
  - Malaise [Recovered/Resolved]
  - Vertigo [Recovered/Resolved]
  - Vomiting [Recovered/Resolved]
  - Confusional state [Recovered/Resolved]
  - Decreased appetite [Recovered/Resolved]
  - Dizziness [Recovered/Resolved]
  - Tremor [Recovered/Resolved]

NARRATIVE: CASE EVENT DATE: 20150112
